FAERS Safety Report 16590916 (Version 1)
Quarter: 2019Q3

REPORT INFORMATION
  Report Type: Spontaneous
  Country: US (occurrence: US)
  Receive Date: 20190718
  Receipt Date: 20190718
  Transmission Date: 20191004
  Serious: Yes (Disabling)
  Sender: FDA-Public Use
  Company Number: US-AMREGENT-20191451

PATIENT
  Sex: Male

DRUGS (1)
  1. INJECTAFER [Suspect]
     Active Substance: FERRIC CARBOXYMALTOSE
     Dosage: UNKNOWN; WEEKLY AND/OR MONTHLY
     Route: 051
     Dates: start: 20170501, end: 20190304

REACTIONS (17)
  - Impaired self-care [Not Recovered/Not Resolved]
  - Inappropriate schedule of product administration [Unknown]
  - Joint range of motion decreased [Recovered/Resolved with Sequelae]
  - Hypophosphataemia [Recovered/Resolved with Sequelae]
  - Emotional distress [Not Recovered/Not Resolved]
  - Arthralgia [Recovered/Resolved with Sequelae]
  - Pain in extremity [Recovered/Resolved with Sequelae]
  - Pain [Recovered/Resolved with Sequelae]
  - Stress fracture [Recovered/Resolved with Sequelae]
  - Hypophosphataemic osteomalacia [Recovered/Resolved with Sequelae]
  - Gait disturbance [Recovered/Resolved with Sequelae]
  - Back pain [Recovered/Resolved with Sequelae]
  - Anxiety [Not Recovered/Not Resolved]
  - Osteomalacia [Recovered/Resolved with Sequelae]
  - Product use in unapproved indication [Unknown]
  - Anhedonia [Not Recovered/Not Resolved]
  - Product quality issue [Unknown]
